FAERS Safety Report 5243667-0 (Version None)
Quarter: 2007Q1

REPORT INFORMATION
  Report Type: 
  Country: None (occurrence: None)
  Receive Date: 20070222
  Receipt Date: 20070214
  Transmission Date: 20070707
  Serious: Yes (Death)
  Sender: FDA-Public Use
  Company Number: JP-JNJFOC-20070203350

PATIENT
  Age: 82 Year
  Sex: Female

DRUGS (3)
  1. ITRACONAZOLE [Suspect]
     Indication: ORAL CANDIDIASIS
     Route: 048
     Dates: start: 20070206, end: 20070206
  2. CYANOCOBALAMIN [Concomitant]
     Route: 048
  3. ALINAMIN-F [Concomitant]
     Route: 048

REACTIONS (1)
  - CYANOSIS [None]
